FAERS Safety Report 25874681 (Version 1)
Quarter: 2025Q3

REPORT INFORMATION
  Report Type: Spontaneous
  Country: EU (occurrence: None)
  Receive Date: 20250926
  Receipt Date: 20250926
  Transmission Date: 20251021
  Serious: Yes (Disabling)
  Sender: FDA-CTU
  Company Number: None

PATIENT
  Age: 57 Year
  Sex: Male

DRUGS (1)
  1. OCREVUS [Suspect]
     Active Substance: OCRELIZUMAB

REACTIONS (5)
  - Prostatomegaly [None]
  - Pollakiuria [None]
  - Urine flow decreased [None]
  - Urinary retention [None]
  - Prostate cancer [None]

NARRATIVE: CASE EVENT DATE: 20250107
